FAERS Safety Report 9375491 (Version 1)
Quarter: 2013Q2

REPORT INFORMATION
  Report Type: Spontaneous
  Country: CA (occurrence: CA)
  Receive Date: 20130628
  Receipt Date: 20130628
  Transmission Date: 20140414
  Serious: Yes (Other)
  Sender: FDA-Public Use
  Company Number: CA-UCBSA-089639

PATIENT
  Sex: Male

DRUGS (2)
  1. KEPPRA [Suspect]
  2. DILANTIN-125 SUSPENSION [Suspect]
     Dosage: DOSE: 425 MG

REACTIONS (1)
  - Barbiturates positive [Unknown]
